FAERS Safety Report 8260100-5 (Version None)
Quarter: 2012Q2

REPORT INFORMATION
  Report Type: 
  Country: None (occurrence: None)
  Receive Date: 20120404
  Receipt Date: 20120329
  Transmission Date: 20120825
  Serious: Yes (Hospitalization, Other)
  Sender: FDA-Public Use
  Company Number: FR-ABBOTT-12P-056-0920141-00

PATIENT
  Sex: Female

DRUGS (5)
  1. TORENTAL LP [Suspect]
     Indication: PRODUCT USED FOR UNKNOWN INDICATION
     Route: 048
     Dates: start: 20060101
  2. ASPIRIN [Suspect]
     Indication: PRODUCT USED FOR UNKNOWN INDICATION
     Route: 048
     Dates: start: 20060101
  3. ACTONEL [Suspect]
     Indication: PRODUCT USED FOR UNKNOWN INDICATION
     Route: 048
     Dates: start: 20060101
  4. OROCAL D3 [Suspect]
     Indication: PRODUCT USED FOR UNKNOWN INDICATION
     Dosage: 1 DF TWICE (2DF DAILY)
     Route: 048
     Dates: start: 20060101
  5. FENOFIBRATE [Suspect]
     Indication: PRODUCT USED FOR UNKNOWN INDICATION
     Route: 048
     Dates: start: 20060101, end: 20111001

REACTIONS (10)
  - VASCULAR PSEUDOANEURYSM [None]
  - PANCREATIC NECROSIS [None]
  - CHOLELITHIASIS [None]
  - BLOOD ALKALINE PHOSPHATASE INCREASED [None]
  - BLOOD CREATININE INCREASED [None]
  - DRUG INEFFECTIVE [None]
  - PANCREATITIS ACUTE [None]
  - GAMMA-GLUTAMYLTRANSFERASE INCREASED [None]
  - CHOLESTASIS [None]
  - HAEMOGLOBIN DECREASED [None]
